FAERS Safety Report 14637354 (Version 1)
Quarter: 2018Q1

REPORT INFORMATION
  Report Type: Spontaneous
  Country: UA (occurrence: UA)
  Receive Date: 20180314
  Receipt Date: 20180314
  Transmission Date: 20180509
  Serious: Yes (Other)
  Sender: FDA-Public Use
  Company Number: UA-B.I. PHARMACEUTICALS,INC./RIDGEFIELD-2018-BI-013774

PATIENT
  Age: 51 Year
  Sex: Female

DRUGS (1)
  1. MOVALIS [Suspect]
     Active Substance: MELOXICAM
     Indication: OSTEOARTHRITIS
     Route: 030

REACTIONS (1)
  - Uterine haemorrhage [Recovered/Resolved]
